FAERS Safety Report 7715697-8 (Version None)
Quarter: 2011Q3

REPORT INFORMATION
  Report Type: 
  Country: None (occurrence: None)
  Receive Date: 20110829
  Receipt Date: 20110825
  Transmission Date: 20111222
  Serious: Yes (Other)
  Sender: FDA-Public Use
  Company Number: AU-PFIZER INC-2011181813

PATIENT
  Age: 68 Year
  Sex: Female

DRUGS (1)
  1. XANAX [Suspect]
     Indication: STRESS
     Dosage: 1 MG, 2X/DAY

REACTIONS (6)
  - MACULAR DEGENERATION [None]
  - EYE DISORDER [None]
  - HEADACHE [None]
  - CATARACT [None]
  - EYE PAIN [None]
  - STRESS [None]
